FAERS Safety Report 23025916 (Version 2)
Quarter: 2023Q4

REPORT INFORMATION
  Report Type: Report from Study
  Country: US (occurrence: US)
  Receive Date: 20231004
  Receipt Date: 20231226
  Transmission Date: 20240109
  Serious: Yes (Other)
  Sender: FDA-Public Use
  Company Number: US-002147023-NVSC2023US210226

PATIENT
  Age: 66 Year
  Sex: Male

DRUGS (2)
  1. ENTRESTO [Suspect]
     Active Substance: SACUBITRIL\VALSARTAN
     Indication: Cardiac failure
     Dosage: 1 DOSAGE FORM, BID (24.26 MG)
     Route: 048
     Dates: start: 20230802
  2. CARVEDILOL [Suspect]
     Active Substance: CARVEDILOL
     Indication: Product used for unknown indication
     Dosage: UNK
     Route: 065
     Dates: start: 202307

REACTIONS (6)
  - Deafness unilateral [Unknown]
  - Tinnitus [Unknown]
  - Blood pressure fluctuation [Unknown]
  - Weight increased [Unknown]
  - Prostatic disorder [Unknown]
  - Product dose omission issue [Unknown]

NARRATIVE: CASE EVENT DATE: 20230701
